FAERS Safety Report 4759089-2 (Version None)
Quarter: 2005Q3

REPORT INFORMATION
  Report Type: 
  Country: None (occurrence: None)
  Receive Date: 20050826
  Receipt Date: 20050812
  Transmission Date: 20060218
  Serious: Yes (Hospitalization, Other)
  Sender: FDA-Public Use
  Company Number: USA-2003-0009007

PATIENT
  Age: 52 Year
  Sex: Male
  Weight: 93 kg

DRUGS (41)
  1. OXYCONTIN [Suspect]
     Indication: PAIN
     Dosage: 60 MG, Q6H
     Dates: start: 19971129
  2. OXYCODONE HCL [Concomitant]
  3. THEO-DUR [Concomitant]
  4. PAXIL [Concomitant]
  5. PREDNISONE [Concomitant]
  6. AGMENTIN (AMOXICILLIN TRIHYDRATE, CLAVULANATE POTASSIUM) [Concomitant]
  7. NAPROXEN [Concomitant]
  8. CLARITIN [Concomitant]
  9. GABAPENTIN [Concomitant]
  10. AMARYL [Concomitant]
  11. LASIX [Concomitant]
  12. AMITRIPTYLINE HCL [Concomitant]
  13. LIPITOR [Concomitant]
  14. ACCUPURIL (QUINAPRIL HYDROCHLORIDE) [Concomitant]
  15. BETOTOPIC-S [Concomitant]
  16. XALATAN [Concomitant]
  17. FOSAMAX [Concomitant]
  18. MYLANA (SIMETICONE, ALUMINIUK HYDROXIDE GEL, DRIED, MAGNESIUM HYDROXID [Concomitant]
  19. VALIUM [Concomitant]
  20. SLO-BID [Concomitant]
  21. ASCRIPTIN (MAGNESIUM HYDROXIDE, ALUMINIUM HYDROXIDE) [Concomitant]
  22. CASANTHRANOL (CASANTHRANOL) [Concomitant]
  23. ROBAXIN [Concomitant]
  24. CEFAZOLIN [Concomitant]
  25. TEMAZEPAM [Concomitant]
  26. TIGAN [Concomitant]
  27. PREVACID [Concomitant]
  28. CLONIDINE [Concomitant]
  29. PLETAL (CICLOSTAZOL) [Concomitant]
  30. CYANOCOBALAMIN [Concomitant]
  31. INSULIN (INSULIN) [Concomitant]
  32. K-DUR 10 [Concomitant]
  33. PROBANTHINE (PROPANTHELINE BROMIDE) [Concomitant]
  34. RABEPRAZOLE SODIUM [Concomitant]
  35. THIAMINE (THIAMINE) [Concomitant]
  36. ATIVAN [Concomitant]
  37. LIBRIUM ^HOFFMAN^ (CHLORDIAZEPOXIDE HYDROCHLORIDE) [Concomitant]
  38. VITAMIN E [Concomitant]
  39. NICOTINAMIDE [Concomitant]
  40. VIOXX [Concomitant]
  41. VENTOLIN [Concomitant]

REACTIONS (81)
  - ABASIA [None]
  - ABDOMINAL DISTENSION [None]
  - ABDOMINAL PAIN [None]
  - AGITATION [None]
  - ANAEMIA POSTOPERATIVE [None]
  - ANGIOPATHY [None]
  - ARTERIAL THROMBOSIS LIMB [None]
  - ARTHRALGIA [None]
  - ASTHENIA [None]
  - ASTHMA [None]
  - BACK PAIN [None]
  - BLINDNESS [None]
  - BRONCHITIS [None]
  - BRONCHITIS ACUTE [None]
  - BUTTOCK PAIN [None]
  - CELLULITIS [None]
  - CHEST DISCOMFORT [None]
  - CHILLS [None]
  - CONDITION AGGRAVATED [None]
  - CONFUSIONAL STATE [None]
  - COUGH [None]
  - DECREASED APPETITE [None]
  - DEPRESSION [None]
  - DIARRHOEA [None]
  - DIZZINESS [None]
  - DRUG ABUSER [None]
  - DRUG DEPENDENCE [None]
  - DRUG INEFFECTIVE [None]
  - DRUG TOXICITY [None]
  - DRUG WITHDRAWAL SYNDROME [None]
  - DYSPNOEA [None]
  - ERECTILE DYSFUNCTION [None]
  - FATIGUE [None]
  - FEELING JITTERY [None]
  - FLAT AFFECT [None]
  - HALLUCINATION, VISUAL [None]
  - HEADACHE [None]
  - HYPERHIDROSIS [None]
  - HYPERTENSION [None]
  - HYPOAESTHESIA [None]
  - HYPOVENTILATION [None]
  - ILEUS PARALYTIC [None]
  - INSOMNIA [None]
  - INTERVERTEBRAL DISC PROTRUSION [None]
  - IRRITABILITY [None]
  - LISTLESS [None]
  - LOCALISED INFECTION [None]
  - MEDIASTINAL DISORDER [None]
  - MENISCUS LESION [None]
  - MUSCLE SPASMS [None]
  - MUSCLE TWITCHING [None]
  - NASAL CONGESTION [None]
  - NAUSEA [None]
  - NECK PAIN [None]
  - NERVOUSNESS [None]
  - OCCULT BLOOD POSITIVE [None]
  - OEDEMA PERIPHERAL [None]
  - OVERDOSE [None]
  - PAIN [None]
  - PAIN IN EXTREMITY [None]
  - PATELLOFEMORAL PAIN SYNDROME [None]
  - PERIPHERAL VASCULAR DISORDER [None]
  - PRODUCTIVE COUGH [None]
  - PYREXIA [None]
  - RESPIRATORY RATE INCREASED [None]
  - RESTLESSNESS [None]
  - SKIN ULCER [None]
  - SPINAL OSTEOARTHRITIS [None]
  - STRESS [None]
  - TACHYCARDIA [None]
  - THROMBOPHLEBITIS [None]
  - TOOTH ABSCESS [None]
  - TOOTHACHE [None]
  - TREATMENT NONCOMPLIANCE [None]
  - TREMOR [None]
  - UPPER RESPIRATORY TRACT INFECTION [None]
  - VISUAL ACUITY REDUCED [None]
  - VOMITING [None]
  - WALKING AID USER [None]
  - WEIGHT INCREASED [None]
  - WHEEZING [None]
